FAERS Safety Report 14600770 (Version 2)
Quarter: 2018Q1

REPORT INFORMATION
  Report Type: Spontaneous
  Country: US (occurrence: US)
  Receive Date: 20180305
  Receipt Date: 20180322
  Transmission Date: 20180509
  Serious: Yes (Other)
  Sender: FDA-Public Use
  Company Number: US-IMPAX LABORATORIES, INC-2018-IPXL-00442

PATIENT
  Sex: Female

DRUGS (4)
  1. RYTARY [Suspect]
     Active Substance: CARBIDOPA\LEVODOPA
     Dosage: 36.25/145 MG, TWO CAPSULES 6 PER 24 HOUR PERIOD
     Route: 065
  2. RYTARY [Suspect]
     Active Substance: CARBIDOPA\LEVODOPA
     Dosage: 36.25/145 MG, TWO CAPSULES EVERY FOUR HOURS 3AM, 7AM, 11AM, 3PM, 7PM AND 11PM
     Route: 065
  3. RYTARY [Suspect]
     Active Substance: CARBIDOPA\LEVODOPA
     Indication: PRODUCT USED FOR UNKNOWN INDICATION
     Dosage: 36.25/145 MG, TWO CAPSULES 3/DAY
     Route: 065
     Dates: start: 20150407
  4. CAUMADIN [Concomitant]
     Active Substance: WARFARIN SODIUM
     Indication: PULMONARY EMBOLISM
     Dosage: UNK
     Route: 065

REACTIONS (2)
  - Pulmonary embolism [Unknown]
  - Renal colic [Recovered/Resolved]

NARRATIVE: CASE EVENT DATE: 200802
